FAERS Safety Report 14961955 (Version 1)
Quarter: 2018Q2

REPORT INFORMATION
  Report Type: Spontaneous
  Country: US (occurrence: US)
  Receive Date: 20180510
  Receipt Date: 20180510
  Transmission Date: 20180711
  Serious: No
  Sender: FDA-Public Use
  Company Number: None

PATIENT
  Sex: Male

DRUGS (1)
  1. COSENTYX [Suspect]
     Active Substance: SECUKINUMAB
     Indication: ILL-DEFINED DISORDER
     Route: 058
     Dates: start: 20170401, end: 20180226

REACTIONS (3)
  - Herpes simplex [None]
  - Infection [None]
  - Drug dose omission [None]
